FAERS Safety Report 23604004 (Version 1)
Quarter: 2024Q1

REPORT INFORMATION
  Report Type: Spontaneous
  Country: CN (occurrence: None)
  Receive Date: 20240307
  Receipt Date: 20240307
  Transmission Date: 20240410
  Serious: Yes (Life-Threatening)
  Sender: FDA-Public Use
  Company Number: CN-ROCHE-3520630

PATIENT
  Age: 24 Month
  Sex: Male

DRUGS (2)
  1. MABTHERA [Suspect]
     Active Substance: RITUXIMAB
     Indication: Lymphoproliferative disorder
     Route: 065
     Dates: start: 20230820
  2. MABTHERA [Suspect]
     Active Substance: RITUXIMAB
     Indication: Renal transplant

REACTIONS (4)
  - Full blood count abnormal [Not Recovered/Not Resolved]
  - Cytokine storm [Not Recovered/Not Resolved]
  - B-lymphocyte count decreased [Not Recovered/Not Resolved]
  - Off label use [Unknown]

NARRATIVE: CASE EVENT DATE: 20230822
